FAERS Safety Report 7033953-6 (Version None)
Quarter: 2010Q4

REPORT INFORMATION
  Report Type: 
  Country: None (occurrence: None)
  Receive Date: 20101005
  Receipt Date: 20100924
  Transmission Date: 20110411
  Serious: Yes (Other)
  Sender: FDA-Public Use
  Company Number: 019433

PATIENT
  Age: 11 Year
  Sex: Female

DRUGS (1)
  1. KEPPRA [Suspect]
     Indication: EPILEPSY
     Dosage: (900 MG ORAL)
     Route: 048
     Dates: start: 20100801, end: 20100820

REACTIONS (1)
  - MYOCLONUS [None]
